FAERS Safety Report 10142695 (Version 1)
Quarter: 2014Q2

REPORT INFORMATION
  Report Type: Spontaneous
  Country: GB (occurrence: GB)
  Receive Date: 20140430
  Receipt Date: 20140430
  Transmission Date: 20141212
  Serious: Yes (Other)
  Sender: FDA-Public Use
  Company Number: GB-RANBAXY-2014RR-80545

PATIENT
  Age: 64 Year
  Sex: Female

DRUGS (3)
  1. NAPROXEN [Suspect]
     Indication: EPICONDYLITIS
     Dosage: 250 MG
     Route: 048
     Dates: start: 20140113, end: 20140123
  2. CO-CODAMOL [Concomitant]
     Indication: ANALGESIC THERAPY
     Dosage: UNK
     Route: 065
     Dates: start: 20131106, end: 20131113
  3. FENBID [Concomitant]
     Indication: PRODUCT USED FOR UNKNOWN INDICATION
     Dosage: UNK
     Route: 065

REACTIONS (1)
  - Wheezing [Recovered/Resolved with Sequelae]
